FAERS Safety Report 10337955 (Version 1)
Quarter: 2014Q3

REPORT INFORMATION
  Report Type: Spontaneous
  Country: GB (occurrence: None)
  Receive Date: 20140722
  Receipt Date: 20140722
  Transmission Date: 20150326
  Serious: Yes (Life-Threatening)
  Sender: FDA-Public Use
  Company Number: AUR-APL-2014-07738

PATIENT
  Age: 51 Year
  Sex: Female
  Weight: 62 kg

DRUGS (1)
  1. ALENDRONIC ACID 70 (ALENDRONIC ACID) UNKNOWN, 70MG [Suspect]
     Active Substance: ALENDRONIC ACID
     Indication: PRODUCT USED FOR UNKNOWN INDICATION
     Dates: start: 200605, end: 201206

REACTIONS (2)
  - Malaise [None]
  - Oesophageal carcinoma [None]

NARRATIVE: CASE EVENT DATE: 20131001
